FAERS Safety Report 21335147 (Version 1)
Quarter: 2022Q3

REPORT INFORMATION
  Report Type: Spontaneous
  Country: MX (occurrence: MX)
  Receive Date: 20220915
  Receipt Date: 20220915
  Transmission Date: 20221026
  Serious: Yes (Hospitalization)
  Sender: FDA-Public Use
  Company Number: MX-BAYER-2022A128281

PATIENT
  Age: 64 Year
  Sex: Male
  Weight: 85 kg

DRUGS (3)
  1. XARELTO [Suspect]
     Active Substance: RIVAROXABAN
     Indication: Product used for unknown indication
     Dosage: 20 MG, QD
     Route: 048
     Dates: start: 20200619
  2. XARELTO [Suspect]
     Active Substance: RIVAROXABAN
     Dosage: XARELTO INTERRUPTION
     Route: 048
  3. XARELTO [Suspect]
     Active Substance: RIVAROXABAN
     Dosage: XARELTO RESTARTED
     Route: 048

REACTIONS (2)
  - COVID-19 [Recovered/Resolved]
  - Medical induction of coma [Recovered/Resolved]
